FAERS Safety Report 7305988-7 (Version None)
Quarter: 2011Q1

REPORT INFORMATION
  Report Type: 
  Country: None (occurrence: None)
  Receive Date: 20110210
  Receipt Date: 20110128
  Transmission Date: 20110831
  Serious: Yes (Hospitalization)
  Sender: FDA-Public Use
  Company Number: MY-JNJFOC-20110200645

PATIENT
  Age: 86 Year
  Sex: Male
  Weight: 64 kg

DRUGS (1)
  1. DACOGEN [Suspect]
     Indication: MYELODYSPLASTIC SYNDROME
     Dosage: INTRAVENOUS
     Route: 042
     Dates: start: 20110105, end: 20110109

REACTIONS (6)
  - FLUID OVERLOAD [None]
  - PNEUMONIA [None]
  - CYSTITIS HAEMORRHAGIC [None]
  - GINGIVAL BLEEDING [None]
  - ANAEMIA [None]
  - PRESYNCOPE [None]
